FAERS Safety Report 6234442-9 (Version None)
Quarter: 2009Q2

REPORT INFORMATION
  Report Type: 
  Country: None (occurrence: None)
  Receive Date: 20090618
  Receipt Date: 20090603
  Transmission Date: 20091009
  Serious: Yes (Other)
  Sender: FDA-Public Use
  Company Number: GR-GENENTECH-284792

PATIENT

DRUGS (4)
  1. AVASTIN [Suspect]
     Indication: NEOPLASM MALIGNANT
     Route: 065
  2. ERLOTINIB [Suspect]
     Indication: NEOPLASM MALIGNANT
     Route: 065
  3. CETUXIMAB [Suspect]
     Indication: NEOPLASM MALIGNANT
     Route: 065
  4. SUNITINIB MALATE [Suspect]
     Indication: NEOPLASM MALIGNANT
     Route: 065

REACTIONS (3)
  - DYSGEUSIA [None]
  - PERIODONTITIS [None]
  - STOMATITIS [None]
